FAERS Safety Report 6670779-7 (Version None)
Quarter: 2010Q2

REPORT INFORMATION
  Report Type: 
  Country: None (occurrence: None)
  Receive Date: 20100407
  Receipt Date: 20100407
  Transmission Date: 20101027
  Serious: Yes (Hospitalization)
  Sender: FDA-Public Use
  Company Number: PHHO2007PL06625

PATIENT
  Sex: Female
  Weight: 65 kg

DRUGS (3)
  1. ACLASTA/ZOLEDRONATE T29581+A+SOLINJ [Suspect]
     Indication: OSTEOPOROSIS POSTMENOPAUSAL
     Dosage: 5 MG ONCE A YEAR
     Route: 042
     Dates: start: 20051012
  2. CALCIUM [Concomitant]
     Indication: OSTEOPOROSIS POSTMENOPAUSAL
  3. VITAMIN D [Concomitant]
     Indication: OSTEOPOROSIS POSTMENOPAUSAL

REACTIONS (7)
  - COUGH [None]
  - CREPITATIONS [None]
  - MALAISE [None]
  - MYALGIA [None]
  - PNEUMONIA [None]
  - PULMONARY FIBROSIS [None]
  - PYREXIA [None]
